FAERS Safety Report 4952878-0 (Version None)
Quarter: 2006Q1

REPORT INFORMATION
  Report Type: 
  Country: None (occurrence: None)
  Receive Date: 20060324
  Receipt Date: 20060206
  Transmission Date: 20060701
  Serious: Yes (Other)
  Sender: FDA-Public Use
  Company Number: PHHO2006JP02798

PATIENT
  Age: 79 Year
  Sex: Female
  Weight: 48 kg

DRUGS (17)
  1. GLEEVEC [Suspect]
     Indication: CHRONIC MYELOID LEUKAEMIA
     Dosage: 400 MG, QD
     Route: 048
     Dates: start: 20021106, end: 20021128
  2. GLEEVEC [Suspect]
     Dosage: 300 MG, QD
     Route: 048
     Dates: start: 20021129, end: 20030307
  3. GLEEVEC [Suspect]
     Dosage: 200 MG, QD
     Route: 048
     Dates: start: 20030308, end: 20030502
  4. GLEEVEC [Suspect]
     Dosage: 100 MG, QD
     Route: 048
     Dates: start: 20030503, end: 20030512
  5. GLEEVEC [Suspect]
     Dosage: 300 MG, QD
     Route: 048
     Dates: start: 20030606, end: 20030620
  6. GLEEVEC [Suspect]
     Dosage: 300 MG, QD
     Route: 048
     Dates: start: 20030628, end: 20030711
  7. GLEEVEC [Suspect]
     Dosage: 200 MG, QD
     Route: 048
     Dates: start: 20030822, end: 20030901
  8. GLEEVEC [Suspect]
     Dosage: 100 MG, QD
     Route: 048
     Dates: start: 20031003
  9. CONIEL [Concomitant]
     Indication: HYPERTENSION
  10. GASTER [Concomitant]
     Indication: GASTRITIS
  11. ASPARA-CA [Concomitant]
     Indication: OSTEOPOROSIS
  12. ALFAROL [Concomitant]
     Indication: OSTEOPOROSIS
  13. SELBEX [Concomitant]
     Indication: GASTRITIS
  14. EXCELASE [Concomitant]
     Indication: DYSPEPSIA
  15. BIOFERMIN [Concomitant]
     Indication: DYSPEPSIA
  16. ROHYPNOL [Concomitant]
     Indication: INSOMNIA
  17. LASIX [Concomitant]
     Indication: DYSPEPSIA

REACTIONS (9)
  - BLADDER CATHETERISATION [None]
  - HAEMATOCRIT DECREASED [None]
  - HAEMOGLOBIN DECREASED [None]
  - NEUROGENIC BLADDER [None]
  - RED BLOOD CELL COUNT DECREASED [None]
  - THERAPY NON-RESPONDER [None]
  - URINARY RETENTION [None]
  - WEIGHT INCREASED [None]
  - WHITE BLOOD CELL COUNT DECREASED [None]
